FAERS Safety Report 6431380-3 (Version None)
Quarter: 2009Q4

REPORT INFORMATION
  Report Type: 
  Country: None (occurrence: None)
  Receive Date: 20091106
  Receipt Date: 20091026
  Transmission Date: 20100525
  Serious: Yes (Other)
  Sender: FDA-Public Use
  Company Number: PHEH2009US14506

PATIENT
  Sex: Female

DRUGS (5)
  1. RECLAST [Suspect]
     Indication: OSTEOPOROSIS
     Dosage: UNK
     Dates: start: 20091022
  2. ORENCIA [Concomitant]
  3. CELEBREX [Concomitant]
  4. FEMARA [Concomitant]
  5. CRESTOR [Concomitant]

REACTIONS (4)
  - HEADACHE [None]
  - MENINGITIS [None]
  - PYREXIA [None]
  - VOMITING [None]
